FAERS Safety Report 6274620-6 (Version None)
Quarter: 2009Q3

REPORT INFORMATION
  Report Type: 
  Country: None (occurrence: None)
  Receive Date: 20090717
  Receipt Date: 20090709
  Transmission Date: 20100115
  Serious: Yes (Hospitalization)
  Sender: FDA-Public Use
  Company Number: 2009US002736

PATIENT
  Age: 70 Year
  Sex: Female

DRUGS (1)
  1. LEXISCAN [Suspect]
     Indication: SCAN MYOCARDIAL PERFUSION
     Dosage: 0.4 MG TOTAL DOSE
     Dates: start: 20090709, end: 20090709

REACTIONS (1)
  - PULMONARY OEDEMA [None]
